FAERS Safety Report 20964002 (Version 2)
Quarter: 2022Q2

REPORT INFORMATION
  Report Type: Spontaneous
  Country: PL (occurrence: PL)
  Receive Date: 20220615
  Receipt Date: 20220628
  Transmission Date: 20220720
  Serious: Yes (Death, Hospitalization, Other)
  Sender: FDA-Public Use
  Company Number: PL-BAXTER-2022BAX011941

PATIENT
  Sex: Male

DRUGS (12)
  1. DEXTROSE [Suspect]
     Active Substance: DEXTROSE
     Dosage: 10 % INFUSION; STARTING AT 13 MG/KG/MIN
     Route: 065
  2. DEXTROSE [Suspect]
     Active Substance: DEXTROSE
     Dosage: INFUSION RATE WAS REDUCED TO 10 MG/KG/MIN (THAT IS, 7 MG/KG/MIN)
     Route: 065
  3. SODIUM BICARBONATE [Concomitant]
     Active Substance: SODIUM BICARBONATE
     Route: 042
  4. DIAZEPAM [Concomitant]
     Active Substance: DIAZEPAM
     Indication: Muscle spasms
     Route: 065
  5. DIAZEPAM [Concomitant]
     Active Substance: DIAZEPAM
     Indication: Opisthotonus
  6. PHENOBARBITAL [Concomitant]
     Active Substance: PHENOBARBITAL
     Indication: Muscle spasms
     Route: 065
  7. PHENOBARBITAL [Concomitant]
     Active Substance: PHENOBARBITAL
     Indication: Opisthotonus
  8. SODIUM BENZOATE [Concomitant]
     Active Substance: SODIUM BENZOATE
     Route: 040
  9. SODIUM PHENYLBUTYRATE [Concomitant]
     Active Substance: SODIUM PHENYLBUTYRATE
     Route: 040
  10. ARGININE [Concomitant]
     Active Substance: ARGININE
     Route: 040
  11. CARGLUMIC ACID [Concomitant]
     Active Substance: CARGLUMIC ACID
     Dosage: CONTINUOUS INFUSION; INTO THE TUBE IN THE LOADING DOSE FOLLOWED BY FRACTIONATED DOSES
     Route: 065
  12. DOPAMINE [Concomitant]
     Active Substance: DOPAMINE HYDROCHLORIDE
     Route: 065

REACTIONS (3)
  - Death [Fatal]
  - Condition aggravated [Recovered/Resolved]
  - Hyperglycaemia [Recovering/Resolving]
